FAERS Safety Report 13507211 (Version 1)
Quarter: 2017Q2

REPORT INFORMATION
  Report Type: Spontaneous
  Country: US (occurrence: US)
  Receive Date: 20170503
  Receipt Date: 20170503
  Transmission Date: 20170830
  Serious: No
  Sender: FDA-Public Use
  Company Number: US-TEVA-737601USA

PATIENT
  Sex: Female

DRUGS (1)
  1. HYDROCODONE W/IBUPROFEN [Suspect]
     Active Substance: HYDROCODONE\IBUPROFEN
     Indication: PAIN
     Dosage: 7.5MG HYROCODONE BITARTRATE + 200MG IBUPROFEN
     Route: 065

REACTIONS (5)
  - Tinnitus [Unknown]
  - Drug ineffective [Unknown]
  - Product substitution issue [Unknown]
  - Diarrhoea [Unknown]
  - Adverse event [Unknown]
